FAERS Safety Report 25308069 (Version 1)
Quarter: 2025Q2

REPORT INFORMATION
  Report Type: Spontaneous
  Country: FR (occurrence: FR)
  Receive Date: 20250513
  Receipt Date: 20250513
  Transmission Date: 20250716
  Serious: Yes (Hospitalization)
  Sender: ANI
  Company Number: FR-ANIPHARMA-2025-FR-000073

PATIENT
  Age: 83 Year
  Sex: Female
  Weight: 76.8 kg

DRUGS (14)
  1. CANDESARTAN CILEXETIL [Suspect]
     Active Substance: CANDESARTAN CILEXETIL
     Indication: Product used for unknown indication
     Route: 048
  2. ALLOPURINOL [Suspect]
     Active Substance: ALLOPURINOL
     Route: 048
  3. NOVORAPID [Suspect]
     Active Substance: INSULIN ASPART
     Route: 058
  4. CHOLECALCIFEROL [Suspect]
     Active Substance: CHOLECALCIFEROL
     Route: 048
  5. POLYETHYLENE GLYCOLS [Suspect]
     Active Substance: POLYETHYLENE GLYCOLS
     Route: 048
  6. FERROUS FUMARATE [Suspect]
     Active Substance: FERROUS FUMARATE
     Route: 048
     Dates: start: 20241129, end: 20241216
  7. DAPAGLIFLOZIN [Suspect]
     Active Substance: DAPAGLIFLOZIN
     Route: 048
  8. LEVOFLOXACIN [Suspect]
     Active Substance: LEVOFLOXACIN
     Route: 048
     Dates: start: 20241117, end: 20241117
  9. PRISTINAMYCIN [Suspect]
     Active Substance: PRISTINAMYCIN
     Route: 048
     Dates: start: 20241118, end: 20241124
  10. DOLIPRANE [Suspect]
     Active Substance: ACETAMINOPHEN
     Route: 048
     Dates: start: 2022, end: 20241216
  11. BENSERAZIDE HYDROCHLORIDE\LEVODOPA [Suspect]
     Active Substance: BENSERAZIDE HYDROCHLORIDE\LEVODOPA
     Route: 048
     Dates: start: 202303
  12. AMIODARONE [Suspect]
     Active Substance: AMIODARONE
     Route: 048
     Dates: start: 2021
  13. ATORVASTATIN [Suspect]
     Active Substance: ATORVASTATIN
     Route: 048
     Dates: start: 2021
  14. SITAGLIPTIN [Suspect]
     Active Substance: SITAGLIPTIN
     Route: 048

REACTIONS (1)
  - Hepatic cytolysis [Recovering/Resolving]
